FAERS Safety Report 16326969 (Version 1)
Quarter: 2019Q2

REPORT INFORMATION
  Report Type: Spontaneous
  Country: US (occurrence: US)
  Receive Date: 20190517
  Receipt Date: 20190517
  Transmission Date: 20190711
  Serious: No
  Sender: FDA-Public Use
  Company Number: US-SA-2019SA131099

PATIENT
  Age: 12 Year
  Sex: Female
  Weight: 73 kg

DRUGS (12)
  1. CEREZYME [Suspect]
     Active Substance: IMIGLUCERASE
     Indication: GAUCHER^S DISEASE
  2. HEPARIN [Concomitant]
     Active Substance: HEPARIN SODIUM
     Dosage: 10UN/ML
     Route: 042
     Dates: start: 20190228
  3. MULTIVITAMINS [VITAMINS NOS] [Concomitant]
     Active Substance: VITAMINS
     Dosage: UNK
     Dates: start: 20150722
  4. QVAR [Concomitant]
     Active Substance: BECLOMETHASONE DIPROPIONATE
     Dosage: 1DOSE PRN
     Dates: start: 20150306
  5. STERILE WATER [Concomitant]
     Active Substance: WATER
     Dosage: UNK
     Route: 042
     Dates: start: 20190228
  6. ALBUTEROL SULFATE. [Concomitant]
     Active Substance: ALBUTEROL SULFATE
     Dosage: 1DOSE PRN
     Route: 055
     Dates: start: 20150306
  7. CEREZYME [Suspect]
     Active Substance: IMIGLUCERASE
     Indication: LIPIDOSIS
     Dosage: 2000 UNK, QOW
     Route: 041
  8. SODIUM CHLORIDE. [Concomitant]
     Active Substance: SODIUM CHLORIDE
     Dosage: 0.9 %
     Route: 042
     Dates: start: 20190228
  9. NORMAL SALINE [Concomitant]
     Active Substance: SODIUM CHLORIDE
     Dosage: 0.9 %
     Route: 042
     Dates: start: 20190228
  10. DIPHENHYDRAMINE. [Concomitant]
     Active Substance: DIPHENHYDRAMINE
     Indication: ANAPHYLACTIC REACTION
     Dosage: 12.5 MG
     Route: 048
     Dates: start: 20190228
  11. LMX [LIDOCAINE] [Concomitant]
     Indication: PREMEDICATION
     Dosage: 4 %
     Route: 061
  12. SOLU-CORTEF [Concomitant]
     Active Substance: HYDROCORTISONE SODIUM SUCCINATE
     Indication: PREMEDICATION
     Dosage: 20 MG
     Route: 042
     Dates: start: 20190228

REACTIONS (1)
  - Tonsillitis [Unknown]

NARRATIVE: CASE EVENT DATE: 2019
